FAERS Safety Report 9322044 (Version 1)
Quarter: 2013Q2

REPORT INFORMATION
  Report Type: Spontaneous
  Country: CA (occurrence: US)
  Receive Date: 20130531
  Receipt Date: 20130531
  Transmission Date: 20140414
  Serious: Yes (Hospitalization)
  Sender: FDA-Public Use
  Company Number: CA-JNJFOC-20130516068

PATIENT
  Age: 60 Year
  Sex: Female
  Weight: 73.03 kg

DRUGS (2)
  1. CHILDREN^S BENADRYL ALLERGY CHERRY LIQUID [Suspect]
     Indication: MULTIPLE ALLERGIES
     Route: 048
     Dates: start: 20130501, end: 20130510
  2. SYNTHROID [Concomitant]
     Route: 065

REACTIONS (3)
  - Throat tightness [Recovered/Resolved]
  - Product contamination [Unknown]
  - Product quality issue [None]
